FAERS Safety Report 8439573-0 (Version None)
Quarter: 2012Q2

REPORT INFORMATION
  Report Type: 
  Country: None (occurrence: None)
  Receive Date: 20120615
  Receipt Date: 20120606
  Transmission Date: 20120825
  Serious: Yes (Hospitalization)
  Sender: FDA-Public Use
  Company Number: FR-PURDUE-GBR-2012-0009984

PATIENT
  Sex: Female

DRUGS (8)
  1. OXYCODONE HCL [Suspect]
     Indication: CANCER PAIN
     Dosage: 20 MG, BID
     Route: 048
     Dates: end: 20120210
  2. OXYCODONE HYDROCHLORIDE [Suspect]
     Indication: CANCER PAIN
     Dosage: UNK
     Route: 048
     Dates: end: 20120210
  3. ACETAMINOPHEN [Concomitant]
     Dosage: 2 DF, TID
     Route: 048
  4. TANGANIL                           /00129601/ [Concomitant]
     Dosage: 500 MG, BID
     Dates: end: 20120210
  5. LEVOTHYROXINE SODIUM [Concomitant]
     Indication: HYPOTHYROIDISM
     Dosage: 50 MCG, BID
     Route: 048
  6. PERINDOPRIL ERBUMINE [Suspect]
     Indication: HYPERTENSION
     Dosage: 1 DF, DAILY
     Route: 048
  7. NEXIUM [Concomitant]
     Dosage: 40 MG, DAILY
     Route: 048
  8. ASPIRIN [Concomitant]
     Dosage: 75 MG, DAILY
     Route: 048

REACTIONS (1)
  - FALL [None]
